FAERS Safety Report 23802075 (Version 1)
Quarter: 2024Q2

REPORT INFORMATION
  Report Type: Spontaneous
  Country: JP (occurrence: JP)
  Receive Date: 20240501
  Receipt Date: 20240501
  Transmission Date: 20240715
  Serious: Yes (Hospitalization, Other)
  Sender: FDA-Public Use
  Company Number: JP-BRISTOL-MYERS SQUIBB COMPANY-2024-066870

PATIENT
  Age: 80 Year
  Sex: Male

DRUGS (6)
  1. APIXABAN [Suspect]
     Active Substance: APIXABAN
     Indication: Product used for unknown indication
  2. APIXABAN [Suspect]
     Active Substance: APIXABAN
     Dosage: RESUMED ON THE FOURTH DAY
     Route: 048
  3. APIXABAN [Suspect]
     Active Substance: APIXABAN
     Dosage: RESUMED ON THE 11TH POST-OPERATIVE DAY
     Route: 048
  4. LIMAPROST [Suspect]
     Active Substance: LIMAPROST
     Indication: Product used for unknown indication
  5. OLMESARTAN [Concomitant]
     Active Substance: OLMESARTAN
     Indication: Product used for unknown indication
  6. PREGABALIN [Concomitant]
     Active Substance: PREGABALIN
     Indication: Product used for unknown indication

REACTIONS (2)
  - Intestinal haematoma [Recovered/Resolved]
  - Anaemia [Recovering/Resolving]
